FAERS Safety Report 24453145 (Version 2)
Quarter: 2024Q4

REPORT INFORMATION
  Report Type: Report from Study
  Country: US (occurrence: US)
  Receive Date: 20241017
  Receipt Date: 20241018
  Transmission Date: 20250115
  Serious: No
  Sender: ROCHE
  Company Number: US-ROCHE-3090562

PATIENT
  Age: 33 Year
  Sex: Female

DRUGS (10)
  1. RITUXAN [Suspect]
     Active Substance: RITUXIMAB
     Indication: Autoimmune haemolytic anaemia
     Dosage: 950 MG IV INFUSION Q 7 DAYS?DATE OF SERVICE:14/3/2022, 21/03/2022, 28/03/2022,04/04/2022, 02/JAN/202
     Route: 042
  2. SYNTHROID [Concomitant]
     Active Substance: LEVOTHYROXINE SODIUM
  3. PREDNISONE [Concomitant]
     Active Substance: PREDNISONE
  4. VENTOLIN [Concomitant]
     Active Substance: ALBUTEROL SULFATE
  5. PRILOSEC [Concomitant]
     Active Substance: OMEPRAZOLE MAGNESIUM
  6. TYLENOL [Concomitant]
     Active Substance: ACETAMINOPHEN
     Dosage: ADMIN DATE : 02/JAN/2024
     Route: 048
  7. ALBUTEROL [Concomitant]
     Active Substance: ALBUTEROL
     Dosage: 2.5MG/0.5ML, ADMIN DATE: 02/JAN/2024
     Route: 050
  8. BENADRYL [Concomitant]
     Active Substance: DIPHENHYDRAMINE HYDROCHLORIDE
     Dosage: ADMIN DATE: 02/JAN/2024
     Route: 042
  9. PEPCID [Concomitant]
     Active Substance: FAMOTIDINE
     Dosage: ADMIN DATE: 02/JAN/2024
     Route: 042
  10. SODIUM CHLORIDE [Concomitant]
     Active Substance: SODIUM CHLORIDE
     Dosage: 25MG/HR , ADMIN DATE: 02/JAN/2024
     Route: 042

REACTIONS (2)
  - Off label use [Unknown]
  - No adverse event [Unknown]
